FAERS Safety Report 9077930 (Version 1)
Quarter: 2013Q1

REPORT INFORMATION
  Report Type: Report from Study
  Country: US (occurrence: US)
  Receive Date: 20130130
  Receipt Date: 20130130
  Transmission Date: 20140127
  Serious: No
  Sender: FDA-Public Use
  Company Number: US-ABBOTT-12P-163-0976693-00

PATIENT
  Age: 65 Year
  Sex: Female

DRUGS (7)
  1. HUMIRA [Suspect]
     Indication: CROHN^S DISEASE
  2. LEVOTHYROID [Concomitant]
     Indication: HYPOTHYROIDISM
     Dosage: 150MCG DAILY
  3. NEXIUM [Concomitant]
     Indication: GASTROOESOPHAGEAL REFLUX DISEASE
  4. MORPHINE SULFATE [Concomitant]
     Indication: BACK PAIN
  5. MEDROXYPROGESTERONE [Concomitant]
     Indication: PRODUCT USED FOR UNKNOWN INDICATION
     Dosage: 2.5MG DAILY
  6. EEMT [Concomitant]
     Indication: HORMONE REPLACEMENT THERAPY
  7. TRETINOIN [Concomitant]
     Indication: HIDRADENITIS
     Dosage: DAILY

REACTIONS (1)
  - Injection site pain [Recovered/Resolved]
